FAERS Safety Report 14113195 (Version 1)
Quarter: 2017Q4

REPORT INFORMATION
  Report Type: Spontaneous
  Country: GB (occurrence: GB)
  Receive Date: 20171023
  Receipt Date: 20171023
  Transmission Date: 20180321
  Serious: Yes (Disabling)
  Sender: FDA-Public Use
  Company Number: PHFR2017GB008250

PATIENT
  Age: 35 Year
  Sex: Male

DRUGS (1)
  1. CITALOPRAM [Suspect]
     Active Substance: CITALOPRAM HYDROBROMIDE
     Indication: ANXIETY
     Dosage: 10 MG, UNK
     Route: 048

REACTIONS (3)
  - Spontaneous penile erection [Recovering/Resolving]
  - Erection increased [Not Recovered/Not Resolved]
  - Abdominal distension [Recovering/Resolving]
